FAERS Safety Report 10146013 (Version 1)
Quarter: 2014Q2

REPORT INFORMATION
  Report Type: Spontaneous
  Country: US (occurrence: None)
  Receive Date: 20140429
  Receipt Date: 20140429
  Transmission Date: 20141212
  Serious: Yes (Hospitalization)
  Sender: FDA-Public Use
  Company Number: 2014P1003575

PATIENT
  Age: 46 Year
  Sex: Female

DRUGS (1)
  1. LITHIUM [Suspect]
     Indication: BIPOLAR DISORDER

REACTIONS (9)
  - Dyspnoea [None]
  - Asthenia [None]
  - Diarrhoea [None]
  - Hypotension [None]
  - Respiratory failure [None]
  - Hypoxia [None]
  - Acute respiratory distress syndrome [None]
  - Lung infiltration [None]
  - Toxicity to various agents [None]
